FAERS Safety Report 5279770-9 (Version None)
Quarter: 2007Q1

REPORT INFORMATION
  Report Type: 
  Country: None (occurrence: None)
  Receive Date: 20061208
  Receipt Date: 20050504
  Transmission Date: 20070707
  Serious: No
  Sender: FDA-Public Use
  Company Number: 2005UW07023

PATIENT
  Age: 48 Year
  Sex: Male

DRUGS (2)
  1. CRESTOR [Suspect]
     Dates: end: 20050114
  2. CRESTOR [Suspect]
     Dates: start: 20050126

REACTIONS (4)
  - BLOOD CREATINE PHOSPHOKINASE INCREASED [None]
  - HEPATIC ENZYME ABNORMAL [None]
  - MUSCULAR WEAKNESS [None]
  - MYALGIA [None]
